FAERS Safety Report 8943794 (Version 1)
Quarter: 2012Q4

REPORT INFORMATION
  Report Type: 
  Country: IT (occurrence: IT)
  Receive Date: 20121203
  Receipt Date: 20121203
  Transmission Date: 20130627
  Serious: Yes (Other)
  Sender: FDA-Public Use
  Company Number: IT-GLAXOSMITHKLINE-B0849046A

PATIENT
  Age: 25 Year
  Sex: Male

DRUGS (4)
  1. REVOLADE [Suspect]
     Indication: THROMBOCYTOPENIA
     Dosage: 50MG per day
  2. REVOLADE [Suspect]
     Indication: THROMBOCYTOPENIA
     Dosage: 75MG per day
  3. PREDNISONE [Concomitant]
     Indication: THROMBOCYTOPENIA
     Dates: end: 20121120
  4. OLANZAPINE [Concomitant]
     Indication: BIPOLAR DISORDER
     Dosage: 50MG per day

REACTIONS (9)
  - Thrombocytopenia [Recovering/Resolving]
  - Abnormal behaviour [Recovering/Resolving]
  - Nervousness [Recovering/Resolving]
  - Alopecia [Not Recovered/Not Resolved]
  - Lymphadenopathy [Unknown]
  - Abdominal pain [Unknown]
  - Blood pressure increased [Recovering/Resolving]
  - Nausea [Not Recovered/Not Resolved]
  - Vomiting [Not Recovered/Not Resolved]
